FAERS Safety Report 20097339 (Version 2)
Quarter: 2021Q4

REPORT INFORMATION
  Report Type: Report from Study
  Country: US (occurrence: US)
  Receive Date: 20211122
  Receipt Date: 20211217
  Transmission Date: 20220303
  Serious: Yes (Other)
  Sender: FDA-Public Use
  Company Number: US-BAYER-2021A229977

PATIENT
  Age: 41 Year
  Sex: Female

DRUGS (3)
  1. STIVARGA [Suspect]
     Active Substance: REGORAFENIB
     Indication: Colon cancer
     Dosage: 80 MG DAILY FOR 7 DAYS THEN 120 MG DAILY
     Dates: start: 20211012, end: 20211018
  2. STIVARGA [Suspect]
     Active Substance: REGORAFENIB
     Indication: Benign laryngeal neoplasm
     Dosage: DAILY DOSE 120 MG
     Dates: start: 20211017
  3. STIVARGA [Suspect]
     Active Substance: REGORAFENIB
     Indication: Colon cancer
     Dosage: DAILY DOSE 40 MG

REACTIONS (10)
  - Colon cancer [Not Recovered/Not Resolved]
  - Contusion [Recovering/Resolving]
  - Pain in extremity [Recovering/Resolving]
  - Contusion [Not Recovered/Not Resolved]
  - Hot flush [Not Recovered/Not Resolved]
  - Night sweats [None]
  - Adverse drug reaction [Not Recovered/Not Resolved]
  - Product dose omission issue [Recovered/Resolved]
  - Inappropriate schedule of product administration [Not Recovered/Not Resolved]
  - Off label use [Not Recovered/Not Resolved]

NARRATIVE: CASE EVENT DATE: 20211012
